FAERS Safety Report 20020057 (Version 2)
Quarter: 2021Q4

REPORT INFORMATION
  Report Type: Report from Study
  Country: US (occurrence: US)
  Receive Date: 20211101
  Receipt Date: 20211111
  Transmission Date: 20220303
  Serious: Yes (Hospitalization)
  Sender: FDA-Public Use
  Company Number: US-AMGEN-USACT2021166905

PATIENT
  Age: 13 Year
  Sex: Male
  Weight: 27.1 kg

DRUGS (5)
  1. DENOSUMAB [Suspect]
     Active Substance: DENOSUMAB
     Indication: Osteogenesis imperfecta
     Dosage: 0.39 MILLILITER
     Route: 058
     Dates: start: 20210728, end: 20210930
  2. TYLENOL [Concomitant]
     Active Substance: ACETAMINOPHEN
     Dosage: 300 MILLIGRAM
     Route: 048
     Dates: start: 20081008
  3. TYLENOL WITH CODEINE [Concomitant]
     Active Substance: ACETAMINOPHEN\CODEINE PHOSPHATE
     Dosage: 300 MILLIGRAM
     Route: 048
     Dates: start: 20090301
  4. CALCIUM [Concomitant]
     Active Substance: CALCIUM
     Dosage: 1000 MILLIGRAM
     Route: 048
     Dates: start: 20180822
  5. CHOLECALCIFEROL [Concomitant]
     Active Substance: CHOLECALCIFEROL
     Dosage: 1000 INTERNATIONAL UNIT
     Route: 048
     Dates: start: 20180822

REACTIONS (1)
  - Hypercalcaemia [Recovered/Resolved]

NARRATIVE: CASE EVENT DATE: 20211018
